FAERS Safety Report 4635850-X (Version None)
Quarter: 2005Q2

REPORT INFORMATION
  Report Type: 
  Country: None (occurrence: None)
  Receive Date: 20050415
  Receipt Date: 20031224
  Transmission Date: 20051028
  Serious: Yes (Death, Hospitalization, Congenital Anomaly, Other)
  Sender: FDA-Public Use
  Company Number: 200410098JP

PATIENT
  Age: 65 Year
  Sex: Female
  Weight: 43 kg

DRUGS (4)
  1. ARAVA [Suspect]
     Indication: RHEUMATOID ARTHRITIS
     Route: 048
     Dates: start: 20031112, end: 20031130
  2. PREDNISOLONE [Concomitant]
     Indication: RHEUMATOID ARTHRITIS
     Route: 048
  3. ENDOXAN [Concomitant]
     Indication: SECONDARY AMYLOIDOSIS
     Route: 048
     Dates: end: 20031106
  4. RIMATIL [Concomitant]
     Indication: RHEUMATOID ARTHRITIS
     Route: 048
     Dates: end: 20031111

REACTIONS (12)
  - ABDOMINAL PAIN [None]
  - BLOOD ALBUMIN DECREASED [None]
  - BLOOD LACTATE DEHYDROGENASE INCREASED [None]
  - DEPRESSED LEVEL OF CONSCIOUSNESS [None]
  - ELECTROLYTE IMBALANCE [None]
  - FLUID RETENTION [None]
  - GASTROINTESTINAL PERFORATION [None]
  - HYPERTENSION [None]
  - PERITONITIS [None]
  - PLATELET COUNT DECREASED [None]
  - PROTEIN TOTAL DECREASED [None]
  - SHOCK [None]
